FAERS Safety Report 5149487-X (Version None)
Quarter: 2006Q4

REPORT INFORMATION
  Report Type: 
  Country: None (occurrence: None)
  Receive Date: 20061113
  Receipt Date: 20061005
  Transmission Date: 20070319
  Serious: Yes (Life-Threatening, Hospitalization, Other)
  Sender: FDA-Public Use
  Company Number: PHEH2006US12560

PATIENT
  Age: 16 Year
  Sex: Female
  Weight: 60 kg

DRUGS (8)
  1. EXJADE [Suspect]
     Indication: IRON OVERLOAD
     Dosage: 1000 MG, QD
     Route: 048
     Dates: start: 20060112, end: 20060929
  2. HYDROXYUREA [Concomitant]
     Indication: SICKLE CELL ANAEMIA
     Dosage: 1000 MG, UNK
     Route: 048
     Dates: start: 20060705
  3. FOLIC ACID [Concomitant]
     Dates: end: 20060929
  4. TETRACYCLINE [Concomitant]
     Dosage: 250 MG, BID
     Dates: end: 20060929
  5. BENZACLIN TOPICAL GEL [Concomitant]
     Indication: ACNE
     Dosage: UNK, UNK
  6. BENZOYL PEROXIDE [Concomitant]
     Indication: ACNE
     Dosage: UNK, UNK
  7. TRIAZ [Concomitant]
     Dosage: UNK, UNK
  8. WESTCORT [Concomitant]
     Dosage: UNK, UNK

REACTIONS (13)
  - ABDOMINAL PAIN [None]
  - ACTIVATED PARTIAL THROMBOPLASTIN TIME PROLONGED [None]
  - BLOOD CREATININE INCREASED [None]
  - BLOOD FIBRINOGEN DECREASED [None]
  - BLOOD UREA INCREASED [None]
  - DIABETES MELLITUS [None]
  - DISSEMINATED INTRAVASCULAR COAGULATION [None]
  - FLUID OVERLOAD [None]
  - LIVER FUNCTION TEST ABNORMAL [None]
  - PANCREATITIS [None]
  - PROTHROMBIN TIME PROLONGED [None]
  - RENAL FAILURE [None]
  - RESPIRATORY FAILURE [None]
